FAERS Safety Report 17633773 (Version 2)
Quarter: 2020Q2

REPORT INFORMATION
  Report Type: Report from Study
  Country: None (occurrence: CA)
  Receive Date: 20200406
  Receipt Date: 20200420
  Transmission Date: 20200713
  Serious: Yes (Death)
  Sender: FDA-Public Use
  Company Number: CA-ABBVIE-20K-028-3353179-00

PATIENT
  Age: 67 Year
  Sex: Female
  Weight: 58 kg

DRUGS (1)
  1. HUMIRA [Suspect]
     Active Substance: ADALIMUMAB
     Indication: RHEUMATOID ARTHRITIS
     Route: 058
     Dates: start: 20191209

REACTIONS (5)
  - Pulmonary mass [Unknown]
  - Weight decreased [Unknown]
  - Hepatic lesion [Unknown]
  - Death [Fatal]
  - Hepatic mass [Unknown]

NARRATIVE: CASE EVENT DATE: 20200319
